FAERS Safety Report 21724354 (Version 1)
Quarter: 2022Q4

REPORT INFORMATION
  Report Type: Spontaneous
  Country: US (occurrence: US)
  Receive Date: 20221213
  Receipt Date: 20221213
  Transmission Date: 20230113
  Serious: No
  Sender: FDA-Public Use
  Company Number: US-ALKERMES INC.-ALK-2022-005895

PATIENT
  Sex: Female

DRUGS (1)
  1. VIVITROL [Suspect]
     Active Substance: NALTREXONE
     Indication: Alcoholism
     Dosage: 380 MILLIGRAM, QMO
     Route: 030
     Dates: start: 202212

REACTIONS (8)
  - Mouth swelling [Unknown]
  - Dyskinesia [Unknown]
  - Daydreaming [Unknown]
  - Dysarthria [Unknown]
  - Nausea [Unknown]
  - Headache [Unknown]
  - Chest pain [Unknown]
  - Muscle spasms [Unknown]
